FAERS Safety Report 23443524 (Version 1)
Quarter: 2024Q1

REPORT INFORMATION
  Report Type: Report from Study
  Country: US (occurrence: US)
  Receive Date: 20240125
  Receipt Date: 20240125
  Transmission Date: 20240409
  Serious: Yes (Hospitalization, Other)
  Sender: FDA-Public Use
  Company Number: US-ABBVIE-5595844

PATIENT
  Sex: Female
  Weight: 63 kg

DRUGS (4)
  1. HUMIRA [Suspect]
     Active Substance: ADALIMUMAB
     Indication: Colitis ulcerative
     Route: 058
     Dates: start: 20210528, end: 20210528
  2. HUMIRA [Suspect]
     Active Substance: ADALIMUMAB
     Indication: Crohn^s disease
     Dosage: FORM STRENGTH UNITS: 40 MILLIGRAM
     Route: 058
     Dates: start: 202309, end: 202312
  3. SERTRALINE [Concomitant]
     Active Substance: SERTRALINE HYDROCHLORIDE
     Indication: Product used for unknown indication
  4. METHOTREXATE [Concomitant]
     Active Substance: METHOTREXATE
     Indication: Colitis ulcerative

REACTIONS (12)
  - Functional gastrointestinal disorder [Recovered/Resolved]
  - Drug ineffective [Recovering/Resolving]
  - Colitis ulcerative [Recovered/Resolved]
  - Postoperative abscess [Recovered/Resolved]
  - Post procedural infection [Recovered/Resolved]
  - Colitis ulcerative [Recovering/Resolving]
  - Neuropathy peripheral [Recovering/Resolving]
  - Drug level decreased [Not Recovered/Not Resolved]
  - Injection site erythema [Not Recovered/Not Resolved]
  - Injection site pruritus [Not Recovered/Not Resolved]
  - Crohn^s disease [Recovering/Resolving]
  - Injection site swelling [Not Recovered/Not Resolved]

NARRATIVE: CASE EVENT DATE: 20210101
